FAERS Safety Report 5915190-9 (Version None)
Quarter: 2008Q4

REPORT INFORMATION
  Report Type: 
  Country: None (occurrence: None)
  Receive Date: 20081010
  Receipt Date: 20080929
  Transmission Date: 20090506
  Serious: Yes (Hospitalization)
  Sender: FDA-Public Use
  Company Number: US-JNJFOC-20080601263

PATIENT
  Sex: Male
  Weight: 127.01 kg

DRUGS (2)
  1. REMICADE [Suspect]
     Indication: COLITIS
     Route: 042
  2. REMICADE [Suspect]
     Indication: CROHN'S DISEASE
     Route: 042

REACTIONS (19)
  - ANAPHYLACTIC SHOCK [None]
  - BENIGN PROSTATIC HYPERPLASIA [None]
  - CROHN'S DISEASE [None]
  - DEEP VEIN THROMBOSIS [None]
  - GOUT [None]
  - HERPES ZOSTER [None]
  - HYPERSENSITIVITY [None]
  - INFLUENZA LIKE ILLNESS [None]
  - INFUSION RELATED REACTION [None]
  - NAUSEA [None]
  - NON-CARDIAC CHEST PAIN [None]
  - OROPHARYNGEAL PAIN [None]
  - PAIN [None]
  - POLYP [None]
  - PULMONARY EMBOLISM [None]
  - RENAL FAILURE ACUTE [None]
  - SPINAL COLUMN STENOSIS [None]
  - URINARY TRACT INFECTION [None]
  - URTICARIA [None]
